FAERS Safety Report 4725727-3 (Version None)
Quarter: 2005Q3

REPORT INFORMATION
  Report Type: 
  Country: None (occurrence: None)
  Receive Date: 20050727
  Receipt Date: 20050715
  Transmission Date: 20060218
  Serious: Yes (Hospitalization, Other)
  Sender: FDA-Public Use
  Company Number: 2005UW10639

PATIENT
  Age: 76 Year
  Sex: Male
  Weight: 65.8 kg

DRUGS (2)
  1. TOPROL-XL [Suspect]
     Indication: HYPERTENSION
     Route: 048
  2. COUMADIN [Concomitant]

REACTIONS (3)
  - BRADYCARDIA [None]
  - DEHYDRATION [None]
  - TRANSIENT ISCHAEMIC ATTACK [None]
